FAERS Safety Report 7539599-5 (Version None)
Quarter: 2011Q2

REPORT INFORMATION
  Report Type: 
  Country: None (occurrence: None)
  Receive Date: 20110609
  Receipt Date: 20110609
  Transmission Date: 20111010
  Serious: Yes (Hospitalization)
  Sender: FDA-Public Use
  Company Number: None

PATIENT
  Sex: Female
  Weight: 68 kg

DRUGS (5)
  1. TAXOL [Suspect]
     Dosage: 1833.6 MG
     Dates: end: 20110406
  2. G-CSF (FILGRASTIM, AMGEN) [Suspect]
     Dosage: 480 MCG
     Dates: end: 20110604
  3. CYCLOPHOSPHAMIDE [Suspect]
     Dosage: 4584 MG
     Dates: end: 20110525
  4. PEGFILGRASTIM (NEULASTA) [Suspect]
     Dosage: 24 MG
     Dates: end: 20110526
  5. DOXORUBICIN HYDROCHLORIDE [Suspect]
     Dosage: 457.8 MG
     Dates: end: 20110525

REACTIONS (2)
  - NEUTROPHIL COUNT DECREASED [None]
  - PYREXIA [None]
